FAERS Safety Report 4724211-0 (Version None)
Quarter: 2005Q3

REPORT INFORMATION
  Report Type: 
  Country: None (occurrence: None)
  Receive Date: 20050726
  Receipt Date: 20050107
  Transmission Date: 20060218
  Serious: Yes (Life-Threatening)
  Sender: FDA-Public Use
  Company Number: PHBS2005JP00700

PATIENT
  Age: 67 Year
  Sex: Male

DRUGS (25)
  1. SERENACE [Suspect]
     Indication: DELUSION
     Dosage: 2.25 MG/D
     Route: 048
     Dates: start: 20030530, end: 20030619
  2. SERENACE [Suspect]
     Indication: HALLUCINATION
     Dosage: 0.5 %, ONCE/SINGLE
     Route: 030
     Dates: start: 20030530, end: 20030530
  3. SERENACE [Suspect]
     Dosage: 0.5 %, ONCE/SINGLE
     Route: 030
     Dates: start: 20030620, end: 20030620
  4. DEPROMEL [Suspect]
     Indication: DEPRESSION
     Dosage: 75 MG/D
     Route: 048
     Dates: start: 20030530, end: 20030619
  5. DEPAS [Concomitant]
     Dosage: 1.5 MG/D
     Route: 048
     Dates: start: 20030530, end: 20030619
  6. TASMOLIN [Concomitant]
     Dosage: 3 TO 6 MG/D
     Route: 048
     Dates: start: 20030530, end: 20030619
  7. LUDIOMIL [Concomitant]
     Dosage: 25 MG/D
     Route: 048
     Dates: start: 20030530, end: 20030614
  8. TETRAMIDE [Concomitant]
     Indication: DEPRESSION
     Dosage: 30 MG/D
     Route: 048
     Dates: start: 20030614, end: 20030619
  9. BENZALIN [Concomitant]
     Indication: INSOMNIA
     Dosage: 5 TO 10 MG/D
     Route: 048
     Dates: start: 20030530, end: 20030619
  10. VEGETAMIN B [Concomitant]
     Indication: INSOMNIA
     Dosage: 1 DF TO 2 DF/D
     Route: 048
     Dates: start: 20030603, end: 20030610
  11. VITAMIN A [Concomitant]
     Indication: INSOMNIA
     Dosage: 1 DF, QD
     Route: 048
     Dates: start: 20030611, end: 20030614
  12. KOLANTYL [Concomitant]
     Indication: PROPHYLAXIS AGAINST GASTROINTESTINAL ULCER
     Dosage: 3.0 G/D
     Route: 048
     Dates: start: 20030610, end: 20030619
  13. ELIETEN [Concomitant]
     Indication: PROPHYLAXIS AGAINST GASTROINTESTINAL ULCER
     Dosage: 1.5 MG/D
     Route: 048
     Dates: start: 20030610, end: 20030619
  14. ALOSENN [Concomitant]
     Indication: CONSTIPATION
     Dosage: 1.0 G/D
     Route: 048
     Dates: start: 20030610, end: 20030619
  15. MAGNESIUM OXIDE [Concomitant]
     Indication: CONSTIPATION
     Dosage: 1.0 G/D
     Route: 048
     Dates: start: 20030618, end: 20030619
  16. PURSENNID [Concomitant]
     Indication: CONSTIPATION
     Dosage: 36 MG/D
     Route: 048
     Dates: start: 20030613, end: 20030619
  17. KEFRAL [Concomitant]
     Indication: UPPER RESPIRATORY TRACT INFLAMMATION
     Dosage: 750 MG/D
     Route: 048
     Dates: start: 20030607, end: 20030610
  18. INDOMETHACIN [Concomitant]
     Indication: PYREXIA
     Dosage: 25 MG PR
     Dates: start: 20030607, end: 20030607
  19. AKINETON [Concomitant]
     Indication: PARKINSON'S DISEASE
     Dosage: 0.5 %/D
     Route: 030
     Dates: start: 20030530, end: 20030620
  20. MIDAZOLAM HCL [Concomitant]
     Indication: SEDATION
     Dosage: 10 MG, ONCE/SINGLE
     Route: 030
     Dates: start: 20030530, end: 20030530
  21. DEXTROSE [Concomitant]
     Indication: NUTRITIONAL SUPPORT
     Dosage: 500 ML (DR)/D
     Dates: start: 20030530, end: 20030613
  22. SOLDEM 3A [Concomitant]
     Dosage: 500 ML (DR)/D
     Dates: start: 20030530, end: 20030613
  23. ANAFRANIL [Suspect]
     Indication: DEPRESSION
     Dosage: 50 MG/D
     Route: 042
     Dates: start: 20030530, end: 20030613
  24. TOFRANIL [Suspect]
     Indication: DEPRESSION
     Dosage: 150 MG/D
     Route: 048
     Dates: start: 20030614, end: 20030619
  25. ANAFRANIL [Suspect]
     Dosage: 75 MG/D
     Route: 048
     Dates: start: 20030530, end: 20030614

REACTIONS (1)
  - NEUROLEPTIC MALIGNANT SYNDROME [None]
